FAERS Safety Report 6901829-8 (Version None)
Quarter: 2010Q3

REPORT INFORMATION
  Report Type: 
  Country: None (occurrence: None)
  Receive Date: 20100803
  Receipt Date: 20080318
  Transmission Date: 20110219
  Serious: No
  Sender: FDA-Public Use
  Company Number: US-PFIZER INC-2008022994

PATIENT
  Age: 55 Year
  Sex: Female
  Weight: 130 kg

DRUGS (3)
  1. LYRICA [Suspect]
     Indication: PAIN
     Dates: start: 20080201
  2. NEURONTIN [Suspect]
     Indication: PAIN
  3. PANADEINE CO [Concomitant]

REACTIONS (3)
  - DRUG INEFFECTIVE [None]
  - HEADACHE [None]
  - WEIGHT INCREASED [None]
